FAERS Safety Report 7617813 (Version 3)
Quarter: 2013Q1

REPORT INFORMATION
  Report Type: Spontaneous
  Country: US (occurrence: US)
  Receive Date: 20101005
  Receipt Date: 20130116
  Transmission Date: 20140127
  Serious: Yes (Hospitalization, Other)
  Sender: FDA-Public Use
  Company Number: PHEH2010US03848

PATIENT
  Age: 64 Year
  Sex: Female

DRUGS (5)
  1. AREDIA [Suspect]
  2. FENTANYL [Suspect]
  3. CARAFATE [Concomitant]
  4. PEPCID [Concomitant]
  5. COMPAZINE [Concomitant]

REACTIONS (16)
  - Bronchitis [Unknown]
  - Chest pain [Unknown]
  - Loss of consciousness [Recovering/Resolving]
  - Apnoea [Recovering/Resolving]
  - Overdose [Recovering/Resolving]
  - Troponin increased [Unknown]
  - Echocardiogram abnormal [Unknown]
  - Pulmonary hypertension [Unknown]
  - Tricuspid valve incompetence [Unknown]
  - Nasal septum deviation [Unknown]
  - Blood creatine phosphokinase increased [Recovering/Resolving]
  - Epistaxis [Unknown]
  - Skin lesion [Unknown]
  - Papilloma [Unknown]
  - Acanthosis [Unknown]
  - Hyperkeratosis [Unknown]
